FAERS Safety Report 7672363-5 (Version None)
Quarter: 2011Q3

REPORT INFORMATION
  Report Type: 
  Country: None (occurrence: None)
  Receive Date: 20110809
  Receipt Date: 20110804
  Transmission Date: 20111222
  Serious: Yes (Death, Hospitalization)
  Sender: FDA-Public Use
  Company Number: DE-BRISTOL-MYERS SQUIBB COMPANY-15764616

PATIENT
  Age: 50 Year
  Sex: Male

DRUGS (16)
  1. CETUXIMAB [Suspect]
     Indication: NON-SMALL CELL LUNG CANCER
     Dosage: LAST INF ON 09MAY2011 400MG/M2.CETUXIMAB 2MG/ML IV INFUSION
     Route: 042
     Dates: start: 20110401
  2. JONOSTERIL [Concomitant]
     Route: 042
  3. GRANISETRON [Concomitant]
     Dosage: 3MG 1 AMPULE IN 100ML NACL
     Route: 042
  4. MULTI-VITAMINS [Concomitant]
     Dosage: 1 AMPULE IN 100ML NACL
     Route: 042
  5. LIPOVENOES [Concomitant]
     Route: 042
  6. HALDOL [Concomitant]
  7. GEMCITABINE [Suspect]
     Indication: NON-SMALL CELL LUNG CANCER
     Dosage: LAST INF ON 02MAY2011 1000MG/M2; ON DAY 1AND 8
     Route: 042
     Dates: start: 20110401
  8. RAMIPRIL [Concomitant]
     Route: 048
  9. PANTOPRAZOLE [Concomitant]
     Route: 048
  10. DURAGESIC-100 [Concomitant]
  11. METOCLOPRAMIDE [Concomitant]
  12. AMINO ACID INJ [Concomitant]
     Route: 042
  13. METAMIZOLE SODIUM [Concomitant]
  14. DEXAMETHASONE [Concomitant]
     Dosage: 8MG IN 100ML NACL
     Route: 042
  15. ARIXTRA [Concomitant]
     Route: 058
  16. MELPERONE HCL [Concomitant]

REACTIONS (3)
  - LUNG INFILTRATION [None]
  - FATIGUE [None]
  - PARANEOPLASTIC SYNDROME [None]
